FAERS Safety Report 9757878 (Version 1)
Quarter: 2013Q4

REPORT INFORMATION
  Report Type: Spontaneous
  Country: US (occurrence: US)
  Receive Date: 20131216
  Receipt Date: 20131216
  Transmission Date: 20140711
  Serious: Yes (Other)
  Sender: FDA-Public Use
  Company Number: US-SHIRE-ALL1-2013-08491

PATIENT
  Sex: Male

DRUGS (2)
  1. LIALDA [Suspect]
     Indication: COLITIS ULCERATIVE
     Dosage: 4.8 G, 1X/DAY:QD
     Route: 048
  2. HUMIRA [Concomitant]
     Indication: COLITIS ULCERATIVE
     Dosage: 40 MG, UNKNOWN
     Route: 065

REACTIONS (2)
  - Alanine aminotransferase increased [Unknown]
  - Fatigue [Unknown]
